FAERS Safety Report 7780631-1 (Version None)
Quarter: 2011Q3

REPORT INFORMATION
  Report Type: 
  Country: None (occurrence: None)
  Receive Date: 20110927
  Receipt Date: 20101213
  Transmission Date: 20111222
  Serious: No
  Sender: FDA-Public Use
  Company Number: US-BRISTOL-MYERS SQUIBB COMPANY-15439219

PATIENT
  Age: 58 Year
  Sex: Male

DRUGS (4)
  1. LANTUS [Concomitant]
     Dosage: SOLOSTAR SHOT
  2. NORVASC [Concomitant]
  3. AVAPRO [Suspect]
  4. DIOVAN [Concomitant]

REACTIONS (1)
  - URINARY INCONTINENCE [None]
